FAERS Safety Report 14068304 (Version 1)
Quarter: 2017Q4

REPORT INFORMATION
  Report Type: Spontaneous
  Country: US (occurrence: None)
  Receive Date: 20171010
  Receipt Date: 20171010
  Transmission Date: 20180321
  Serious: Yes (Hospitalization)
  Sender: FDA-Public Use
  Company Number: None

PATIENT
  Age: 77 Year
  Sex: Female
  Weight: 53.7 kg

DRUGS (2)
  1. ETOPOSIDE (VP-16) [Suspect]
     Active Substance: ETOPOSIDE
     Dates: end: 20170920
  2. CARBOPLATIN. [Suspect]
     Active Substance: CARBOPLATIN
     Dates: end: 20170918

REACTIONS (10)
  - Dizziness [None]
  - Fatigue [None]
  - Pseudomonas test positive [None]
  - Vomiting [None]
  - Decreased appetite [None]
  - Diarrhoea [None]
  - Nausea [None]
  - Asthenia [None]
  - Hyponatraemia [None]
  - Incontinence [None]

NARRATIVE: CASE EVENT DATE: 20170929
